FAERS Safety Report 8512275-8 (Version None)
Quarter: 2012Q3

REPORT INFORMATION
  Report Type: 
  Country: None (occurrence: None)
  Receive Date: 20120716
  Receipt Date: 20120713
  Transmission Date: 20120928
  Serious: Yes (Death)
  Sender: FDA-Public Use
  Company Number: US-ROCHE-1074031

PATIENT
  Sex: Female

DRUGS (5)
  1. NITROSTAT [Concomitant]
     Dosage: AS REQUIRED
     Route: 058
  2. ZOLPIDEM [Concomitant]
     Route: 048
  3. ESTRACE [Concomitant]
     Route: 067
  4. LUCENTIS [Suspect]
     Indication: AGE-RELATED MACULAR DEGENERATION
     Route: 050
     Dates: start: 20110927, end: 20120522
  5. DIOVAN [Concomitant]
     Route: 048

REACTIONS (4)
  - CONGENITAL AORTIC ATRESIA [None]
  - MYOCARDIAL INFARCTION [None]
  - CARDIAC FAILURE CONGESTIVE [None]
  - ACUTE RESPIRATORY FAILURE [None]
